FAERS Safety Report 14713808 (Version 1)
Quarter: 2018Q2

REPORT INFORMATION
  Report Type: Spontaneous
  Country: US (occurrence: US)
  Receive Date: 20180404
  Receipt Date: 20180404
  Transmission Date: 20180711
  Serious: No
  Sender: FDA-Public Use
  Company Number: US-CELGENEUS-USA-20180308341

PATIENT
  Sex: Male

DRUGS (2)
  1. POMALYST [Suspect]
     Active Substance: POMALIDOMIDE
     Indication: PLASMA CELL MYELOMA
  2. POMALYST [Suspect]
     Active Substance: POMALIDOMIDE
     Indication: FOOT DEFORMITY
     Dosage: 4 MILLIGRAM
     Route: 048
     Dates: start: 20170530

REACTIONS (2)
  - Full blood count increased [Not Recovered/Not Resolved]
  - Drug ineffective [Unknown]
